FAERS Safety Report 4584713-7 (Version None)
Quarter: 2005Q1

REPORT INFORMATION
  Report Type: 
  Country: None (occurrence: None)
  Receive Date: 20050211
  Receipt Date: 20050131
  Transmission Date: 20050727
  Serious: Yes (Other)
  Sender: FDA-Public Use
  Company Number: HQWYE130704FEB05

PATIENT
  Age: 73 Year
  Sex: Female

DRUGS (16)
  1. AMIODARONE HCL [Suspect]
     Indication: ATRIAL FIBRILLATION
     Dosage: 3RD POST OPERATIVE DAY 720 MG INTRAVENOUS
     Route: 042
  2. ASPIRIN [Concomitant]
  3. PRAVASTATIN [Concomitant]
  4. AMLODIPINE [Concomitant]
  5. GLYBURIDE [Concomitant]
  6. ATENOLOL [Concomitant]
  7. ALLOPURINOL [Concomitant]
  8. PROPRANOLOL [Concomitant]
  9. PHENYTOIN [Concomitant]
  10. PROPOFOL [Concomitant]
  11. MORPHINE SULFATE [Concomitant]
  12. INSULIN [Concomitant]
  13. HEPARIN [Concomitant]
  14. FUROSEMIDE [Concomitant]
  15. ACETAMINOPHEN [Concomitant]
  16. PHENPROCOUMON (PHENPROCOUMON) [Concomitant]

REACTIONS (4)
  - BLOOD CREATININE INCREASED [None]
  - HEPATOCELLULAR DAMAGE [None]
  - HEPATOTOXICITY [None]
  - INTERNATIONAL NORMALISED RATIO INCREASED [None]
